FAERS Safety Report 7113207-X (Version None)
Quarter: 2010Q4

REPORT INFORMATION
  Report Type: 
  Country: None (occurrence: None)
  Receive Date: 20101119
  Receipt Date: 20091202
  Transmission Date: 20110411
  Serious: No
  Sender: FDA-Public Use
  Company Number: A0832873A

PATIENT
  Age: 47 Year
  Sex: Female

DRUGS (4)
  1. WELLBUTRIN SR [Suspect]
     Indication: DEPRESSION
     Dosage: 150MG TWICE PER DAY
     Route: 048
     Dates: start: 20091101
  2. CLARITIN [Suspect]
     Route: 065
  3. SUDAFED 12 HOUR [Suspect]
     Route: 065
  4. PROTONIX [Concomitant]

REACTIONS (1)
  - FATIGUE [None]
